FAERS Safety Report 7138284-1 (Version None)
Quarter: 2010Q4

REPORT INFORMATION
  Report Type: 
  Country: None (occurrence: None)
  Receive Date: 20101206
  Receipt Date: 20101124
  Transmission Date: 20110411
  Serious: Yes (Hospitalization)
  Sender: FDA-Public Use
  Company Number: US-ROCHE-744876

PATIENT
  Age: 68 Year
  Sex: Female

DRUGS (11)
  1. BEVACIZUMAB [Suspect]
     Dosage: FREQUENCY 1,8,15
     Route: 042
     Dates: start: 20101101
  2. IXABEPILONE [Suspect]
     Dosage: FREQUENCY 1,15
     Route: 042
     Dates: start: 20101101
  3. ESTRADIOL [Concomitant]
     Dates: start: 20090107
  4. COUMADIN [Concomitant]
     Dates: start: 20101019
  5. PROCHLORPERAZINE MALEATE [Concomitant]
     Dates: start: 20090604
  6. ATIVAN [Concomitant]
     Dates: start: 20090604
  7. ALBUTEROL [Concomitant]
     Dates: start: 20101018
  8. HYDROCODONE [Concomitant]
     Indication: PAIN
     Dates: start: 20091202
  9. MIRTAZAPINE [Concomitant]
     Dates: start: 20100823
  10. DEXAMETHASONE [Concomitant]
     Dates: start: 20101101
  11. OXYCODONE HCL [Concomitant]
     Indication: PAIN

REACTIONS (1)
  - PLEURAL EFFUSION [None]
